FAERS Safety Report 21967876 (Version 1)
Quarter: 2023Q1

REPORT INFORMATION
  Report Type: Spontaneous
  Country: CN (occurrence: CN)
  Receive Date: 20230208
  Receipt Date: 20230208
  Transmission Date: 20230418
  Serious: Yes (Hospitalization)
  Sender: FDA-Public Use
  Company Number: None

PATIENT
  Age: 54 Year
  Sex: Female
  Weight: 60 kg

DRUGS (4)
  1. CYCLOPHOSPHAMIDE [Suspect]
     Active Substance: CYCLOPHOSPHAMIDE
     Indication: Breast cancer female
     Dosage: 0.9 G, QD, DILUTED WITH 50 ML OF 0.9% SODIUM CHLORIDE
     Route: 041
     Dates: start: 20230104, end: 20230104
  2. SODIUM CHLORIDE [Suspect]
     Active Substance: SODIUM CHLORIDE
     Indication: Medication dilution
     Dosage: 50 ML, QD, USED TO DILUTE 0.9G CYCLOPHOSPHAMIDE
     Route: 041
     Dates: start: 20230104, end: 20230104
  3. EPIRUBICIN HYDROCHLORIDE [Suspect]
     Active Substance: EPIRUBICIN HYDROCHLORIDE
     Indication: Breast cancer female
     Dosage: 120 MG, QD, DILUTED WITH 100 ML OF 0.9% SODIUM CHLORIDE
     Route: 042
     Dates: start: 20230104, end: 20230104
  4. SODIUM CHLORIDE [Suspect]
     Active Substance: SODIUM CHLORIDE
     Indication: Vehicle solution use
     Dosage: 100 ML, QD, USED TO DILUTE 120 MG EPIRUBICIN HYDROCHLORIDE
     Route: 042
     Dates: start: 20230104, end: 20230104

REACTIONS (1)
  - Hepatic function abnormal [Recovering/Resolving]

NARRATIVE: CASE EVENT DATE: 20230124
